FAERS Safety Report 18666711 (Version 1)
Quarter: 2020Q4

REPORT INFORMATION
  Report Type: Report from Study
  Country: None (occurrence: CA)
  Receive Date: 20201227
  Receipt Date: 20201227
  Transmission Date: 20210114
  Serious: Yes (Hospitalization)
  Sender: FDA-Public Use
  Company Number: CA-ABBVIE-20K-028-3705686-00

PATIENT
  Sex: Female

DRUGS (1)
  1. HUMIRA [Suspect]
     Active Substance: ADALIMUMAB
     Indication: RHEUMATOID ARTHRITIS
     Route: 058
     Dates: start: 20080601

REACTIONS (4)
  - Confusional state [Unknown]
  - Delusion [Unknown]
  - Inappropriate schedule of product administration [Unknown]
  - Mental disorder [Unknown]

NARRATIVE: CASE EVENT DATE: 2020
